FAERS Safety Report 6657582-9 (Version None)
Quarter: 2010Q1

REPORT INFORMATION
  Report Type: 
  Country: None (occurrence: None)
  Receive Date: 20100330
  Receipt Date: 20100322
  Transmission Date: 20100710
  Serious: Yes (Hospitalization)
  Sender: FDA-Public Use
  Company Number: US-SANOFI-AVENTIS-2010SA016438

PATIENT
  Age: 80 Year
  Sex: Female

DRUGS (3)
  1. MULTAQ [Suspect]
     Indication: ATRIAL FIBRILLATION
     Route: 048
  2. AMIODARONE HCL [Concomitant]
  3. AMIODARONE HCL [Concomitant]

REACTIONS (3)
  - BLOOD CREATININE INCREASED [None]
  - CARDIAC FAILURE CONGESTIVE [None]
  - DECREASED APPETITE [None]
